FAERS Safety Report 10459299 (Version 1)
Quarter: 2014Q3

REPORT INFORMATION
  Report Type: Spontaneous
  Country: US (occurrence: None)
  Receive Date: 20140915
  Receipt Date: 20140915
  Transmission Date: 20150326
  Serious: Yes (Hospitalization, Other)
  Sender: FDA-Public Use
  Company Number: ADR-2014-01662

PATIENT
  Age: 14 Month
  Sex: Male

DRUGS (5)
  1. LIDOCAINE 5% [Suspect]
     Active Substance: LIDOCAINE
  2. CLONIDINE 2% [Suspect]
     Active Substance: CLONIDINE
  3. BACLOFEN 0.4% [Suspect]
     Active Substance: BACLOFEN
  4. GABAPENTIN 50MG/ML PL00147/0155 [Suspect]
     Active Substance: GABAPENTIN
  5. KETAMINE [Suspect]
     Active Substance: KETAMINE

REACTIONS (6)
  - Miosis [None]
  - Lethargy [None]
  - Respiratory rate decreased [None]
  - Toxicity to various agents [None]
  - Accidental exposure to product by child [None]
  - Bradycardia [None]

NARRATIVE: CASE EVENT DATE: 20140101
